FAERS Safety Report 12664329 (Version 2)
Quarter: 2019Q2

REPORT INFORMATION
  Report Type: Spontaneous
  Country: US (occurrence: US)
  Receive Date: 20160818
  Receipt Date: 20190508
  Transmission Date: 20190711
  Serious: Yes (Death, Hospitalization, Disabling, Other)
  Sender: FDA-Public Use
  Company Number: US-009507513-1608USA009408

PATIENT
  Sex: Female
  Weight: 68.03 kg

DRUGS (4)
  1. LYRICA [Concomitant]
     Active Substance: PREGABALIN
     Indication: FIBROMYALGIA
     Dosage: UNK
     Dates: start: 2008, end: 2009
  2. JANUVIA [Suspect]
     Active Substance: SITAGLIPTIN PHOSPHATE
     Indication: TYPE 2 DIABETES MELLITUS
     Dosage: 50 MILLIGRAM, QD
     Route: 048
     Dates: start: 20080630, end: 20081128
  3. JANUVIA [Suspect]
     Active Substance: SITAGLIPTIN PHOSPHATE
     Dosage: 100 MILLIGRAM, QD
     Route: 048
     Dates: start: 20090112, end: 20090619
  4. JANUVIA [Suspect]
     Active Substance: SITAGLIPTIN PHOSPHATE
     Dosage: 100 MILLIGRAM, QD
     Route: 048
     Dates: start: 20100122, end: 20120215

REACTIONS (17)
  - Hypertension [Recovered/Resolved]
  - Cholecystitis [Unknown]
  - Hypercholesterolaemia [Recovered/Resolved]
  - Fibromyalgia [Unknown]
  - Depression [Unknown]
  - Pharyngitis [Unknown]
  - Nausea [Recovered/Resolved]
  - Upper respiratory tract infection [Unknown]
  - Gastrointestinal disorder [Unknown]
  - Pancreatic carcinoma metastatic [Fatal]
  - Anxiety [Unknown]
  - Gastrooesophageal reflux disease [Unknown]
  - Diarrhoea [Unknown]
  - Neuropathy peripheral [Unknown]
  - Cholelithiasis [Unknown]
  - Vomiting [Recovered/Resolved]
  - Drug hypersensitivity [Unknown]

NARRATIVE: CASE EVENT DATE: 2008
